FAERS Safety Report 19915945 (Version 1)
Quarter: 2021Q4

REPORT INFORMATION
  Report Type: Spontaneous
  Country: US (occurrence: US)
  Receive Date: 20211005
  Receipt Date: 20211005
  Transmission Date: 20220303
  Serious: No
  Sender: FDA-Public Use
  Company Number: US-INVENTIA-000480

PATIENT
  Age: 80 Year
  Sex: Female

DRUGS (13)
  1. LANSOPRAZOLE [Suspect]
     Active Substance: LANSOPRAZOLE
     Indication: Product used for unknown indication
     Dosage: STRENGTH-30 MG PER PILL, 90 PILLS PER BOTTLE, ONE PILL TWICE PER DAY
     Dates: start: 20210415
  2. ELIQUIS [Concomitant]
     Active Substance: APIXABAN
     Dosage: STRENGTH-5MG TWICE PER DAY MORNING AND NIGHT
  3. OLMESARTAN MEDOXOMIL [Concomitant]
     Active Substance: OLMESARTAN MEDOXOMIL
     Dosage: STRENGH-40 MG ONCE IN THE MORNING
  4. ALPRAZOLAM [Concomitant]
     Active Substance: ALPRAZOLAM
     Dosage: STRENGTH-0.5 MG ONLY AS NEEDED, TAKEN SELDOM
  5. AZELASTINE/AZELASTINE HYDROCHLORIDE [Concomitant]
     Dosage: STRENGTH-0.1% (137MCG SPRAY), TWO SPRAYS IN EACH NOSTRIL TWICE PER DAY
  6. ERYTHROMYCIN [Concomitant]
     Active Substance: ERYTHROMYCIN
     Dosage: STRENGTH-0.5% APPLIED TWICE PER DAY
  7. FUROSEMIDE [Concomitant]
     Active Substance: FUROSEMIDE
     Dosage: STRENGTH-20MG TAKEN AS NEEDED
  8. IPRATROPIUM [Concomitant]
     Active Substance: IPRATROPIUM
     Dosage: (0.6% SPRAY TAKEN TWO SPRAYS TAKEN IN EACH NOSTRIL TWICE A DAY)
  9. PRAVASTATIN [Concomitant]
     Active Substance: PRAVASTATIN
     Dosage: STRENGTH-40 MG ONE TABLET AT BEDTIME DAILY
  10. PREDNISOLONE [Concomitant]
     Active Substance: PREDNISOLONE
     Dosage: STRENGTH-1% EYE DROP IN BOTH EYES DAILY (FOR CORNEAL TRANSPLANTS)
  11. RESTASIS [Concomitant]
     Active Substance: CYCLOSPORINE
     Dosage: STRENGTH-0.05% EYE EMULSION (ONE DROP IN BOTH EYES TWICE PER DAY)
  12. SOTALOL [Concomitant]
     Active Substance: SOTALOL
     Dosage: STRENGTH-80 MG TABLETS ONE BY MOUTH, TWICE PER DAY
  13. HYDROXYZINE [Concomitant]
     Active Substance: HYDROXYZINE HYDROCHLORIDE
     Dosage: STRENGTH-25 MG ONCE DAILY AT NIGHT

REACTIONS (1)
  - Gastrooesophageal reflux disease [Not Recovered/Not Resolved]
